FAERS Safety Report 4477645-6 (Version None)
Quarter: 2004Q4

REPORT INFORMATION
  Report Type: 
  Country: None (occurrence: None)
  Receive Date: 20041014
  Receipt Date: 20041002
  Transmission Date: 20050328
  Serious: Yes (Other)
  Sender: FDA-Public Use
  Company Number: 2004075431

PATIENT
  Sex: 0

DRUGS (6)
  1. NEURONTIN [Suspect]
     Indication: ARTHRITIS
     Dosage: (600 MG)
  2. FENTANYL [Concomitant]
  3. IBUPROGEN (IBUPROFEN) [Concomitant]
  4. ROFECOXIB [Concomitant]
  5. HELIANTHUS TUBEROSUS (HELIANTHUS TUBEROUSUS [Concomitant]
  6. ALL OTHR TEHRAPEUTIC PRODUCTS (ALL OTHER THERAPEUTIC PRODUCT) [Concomitant]

REACTIONS (3)
  - ARTHRALGIA [None]
  - KNEE ARTHROPLASTY [None]
  - OSTEOPOROSIS [None]
